FAERS Safety Report 7971119-3 (Version None)
Quarter: 2011Q4

REPORT INFORMATION
  Report Type: 
  Country: None (occurrence: None)
  Receive Date: 20111212
  Receipt Date: 20111212
  Transmission Date: 20120403
  Serious: Yes (Death)
  Sender: FDA-Public Use
  Company Number: None

PATIENT
  Age: 48 Year
  Sex: Female
  Weight: 58.967 kg

DRUGS (1)
  1. DRIXORAL [Suspect]
     Indication: NASOPHARYNGITIS
     Dates: start: 19960817, end: 19960820

REACTIONS (1)
  - CEREBRAL HAEMORRHAGE [None]
